FAERS Safety Report 7010150-1 (Version None)
Quarter: 2010Q3

REPORT INFORMATION
  Report Type: 
  Country: None (occurrence: None)
  Receive Date: 20100923
  Receipt Date: 20100911
  Transmission Date: 20110219
  Serious: Yes (Other)
  Sender: FDA-Public Use
  Company Number: US-PFIZER INC-2010112383

PATIENT
  Sex: Female
  Weight: 49.887 kg

DRUGS (5)
  1. CHANTIX [Suspect]
     Indication: SMOKING CESSATION THERAPY
     Dosage: 0.5 MG, 1X/DAY
     Route: 048
     Dates: start: 20100828
  2. CHANTIX [Suspect]
     Dosage: 0.5 MG, 2X/DAY
     Route: 048
     Dates: start: 20100801
  3. CHANTIX [Suspect]
     Dosage: 1 MG, 2X/DAY
     Route: 048
     Dates: start: 20100901
  4. ATIVAN [Concomitant]
     Indication: PANIC DISORDER
     Dosage: UNK, AS NEEDED
  5. EFFEXOR [Concomitant]
     Indication: PANIC DISORDER
     Dosage: 150 MG, 1X/DAY

REACTIONS (5)
  - ANXIETY [None]
  - DEPRESSED MOOD [None]
  - DEPRESSION [None]
  - NERVOUSNESS [None]
  - PANIC ATTACK [None]
